FAERS Safety Report 6490201-3 (Version None)
Quarter: 2009Q4

REPORT INFORMATION
  Report Type: 
  Country: None (occurrence: None)
  Receive Date: 20091211
  Receipt Date: 20091118
  Transmission Date: 20100525
  Serious: No
  Sender: FDA-Public Use
  Company Number: US-ROCHE-665283

PATIENT

DRUGS (2)
  1. TAMIFLU [Suspect]
     Indication: H1N1 INFLUENZA
     Dosage: FREQUENCY: QDX10 D
     Route: 064
     Dates: start: 20091027, end: 20091105
  2. VITAMIN TAB [Concomitant]
     Indication: PREGNANCY
     Dosage: FREQUENCY: DAILY
     Dates: start: 20090201

REACTIONS (2)
  - LIVE BIRTH [None]
  - NO ADVERSE EVENT [None]
